FAERS Safety Report 17390949 (Version 1)
Quarter: 2020Q1

REPORT INFORMATION
  Report Type: Spontaneous
  Country: US (occurrence: US)
  Receive Date: 20200207
  Receipt Date: 20200207
  Transmission Date: 20200409
  Serious: Yes (Hospitalization)
  Sender: FDA-Public Use
  Company Number: US-MYLANLABS-2020M1014088

PATIENT
  Age: 2 Year

DRUGS (1)
  1. BUPROPION. [Suspect]
     Active Substance: BUPROPION
     Indication: PRODUCT USED FOR UNKNOWN INDICATION
     Dosage: FORMULATION: EXTENDED RELEASE
     Route: 048

REACTIONS (3)
  - Accidental overdose [Unknown]
  - Accidental exposure to product by child [Unknown]
  - Seizure [Unknown]
